FAERS Safety Report 9450133 (Version 1)
Quarter: 2013Q3

REPORT INFORMATION
  Report Type: Spontaneous
  Country: BR (occurrence: BR)
  Receive Date: 20130809
  Receipt Date: 20130809
  Transmission Date: 20140515
  Serious: Yes (Death)
  Sender: FDA-Public Use
  Company Number: BR-009507513-1308BRA003179

PATIENT
  Sex: Female

DRUGS (5)
  1. SIMVASTATIN [Suspect]
     Route: 048
  2. TEGRETOL [Concomitant]
  3. DIAZEPAM [Concomitant]
  4. FENERGAN [Concomitant]
  5. HALDOL [Concomitant]

REACTIONS (1)
  - Death [Fatal]
